FAERS Safety Report 6442297-2 (Version None)
Quarter: 2009Q4

REPORT INFORMATION
  Report Type: 
  Country: None (occurrence: None)
  Receive Date: 20091116
  Receipt Date: 20091105
  Transmission Date: 20100525
  Serious: Yes (Hospitalization)
  Sender: FDA-Public Use
  Company Number: DE-AMGEN-UK373069

PATIENT
  Age: 26 Year
  Sex: Male

DRUGS (4)
  1. NEULASTA [Suspect]
     Indication: CHEMOTHERAPY
     Route: 058
     Dates: start: 20090814
  2. ETOPOSIDE [Concomitant]
     Route: 065
     Dates: end: 20090813
  3. IFOSFAMIDE [Concomitant]
     Route: 065
     Dates: end: 20090813
  4. DOXORUBICIN HYDROCHLORIDE [Concomitant]
     Route: 065
     Dates: end: 20090813

REACTIONS (1)
  - FEBRILE NEUTROPENIA [None]
